FAERS Safety Report 18556112 (Version 2)
Quarter: 2020Q4

REPORT INFORMATION
  Report Type: Spontaneous
  Country: US (occurrence: US)
  Receive Date: 20201128
  Receipt Date: 20201228
  Transmission Date: 20210114
  Serious: Yes (Other)
  Sender: FDA-Public Use
  Company Number: US-MALLINCKRODT-T202005519

PATIENT
  Sex: Female
  Weight: 71 kg

DRUGS (4)
  1. H.P. ACTHAR [Suspect]
     Active Substance: CORTICOTROPIN
     Indication: SENILE OSTEOPOROSIS
  2. H.P. ACTHAR [Suspect]
     Active Substance: CORTICOTROPIN
     Indication: STRESS FRACTURE
     Dosage: 80 UNITS/1 MILLILITER 5 TIMES WEEKLY, AS DIRECTED
     Route: 058
     Dates: start: 2020
  3. H.P. ACTHAR [Suspect]
     Active Substance: CORTICOTROPIN
     Indication: RHEUMATOID ARTHRITIS
     Dosage: 80 UNITS/1 MILLILITER 5 TIMES WEEKLY, AS DIRECTED
     Route: 058
     Dates: start: 202004, end: 2020
  4. H.P. ACTHAR [Suspect]
     Active Substance: CORTICOTROPIN
     Indication: OSTEOPOROTIC FRACTURE

REACTIONS (6)
  - Osteoporotic fracture [Unknown]
  - Senile osteoporosis [Unknown]
  - Condition aggravated [Unknown]
  - Stress fracture [Unknown]
  - Urinary tract infection [Recovering/Resolving]
  - Rheumatoid arthritis [Unknown]

NARRATIVE: CASE EVENT DATE: 2020
